FAERS Safety Report 9322931 (Version 1)
Quarter: 2013Q2

REPORT INFORMATION
  Report Type: Spontaneous
  Country: PH (occurrence: PH)
  Receive Date: 20130603
  Receipt Date: 20130603
  Transmission Date: 20140414
  Serious: Yes (Other)
  Sender: FDA-Public Use
  Company Number: PH-009507513-1305PHL016865

PATIENT
  Sex: 0

DRUGS (1)
  1. INVANZ [Suspect]

REACTIONS (1)
  - Deafness [Unknown]
